FAERS Safety Report 5243868-1 (Version None)
Quarter: 2007Q1

REPORT INFORMATION
  Report Type: 
  Country: None (occurrence: None)
  Receive Date: 20070220
  Receipt Date: 20070220
  Transmission Date: 20070707
  Serious: Yes (Life-Threatening)
  Sender: FDA-Public Use
  Company Number: None

PATIENT
  Age: 41 Year
  Sex: Female
  Weight: 52.1637 kg

DRUGS (2)
  1. CYMBALTA [Suspect]
     Indication: ANXIETY
     Dosage: 90 MG 1X / DAY PO
     Route: 048
     Dates: start: 20050212, end: 20050717
  2. CYMBALTA [Suspect]
     Indication: DEPRESSION
     Dosage: 90 MG 1X / DAY PO
     Route: 048
     Dates: start: 20050212, end: 20050717

REACTIONS (7)
  - ANXIETY [None]
  - DEPRESSION [None]
  - DISORIENTATION [None]
  - LOSS OF EMPLOYMENT [None]
  - ORAL INTAKE REDUCED [None]
  - SUICIDAL IDEATION [None]
  - WEIGHT DECREASED [None]
